FAERS Safety Report 5165538-0 (Version None)
Quarter: 2006Q4

REPORT INFORMATION
  Report Type: 
  Country: None (occurrence: None)
  Receive Date: 20061124
  Receipt Date: 20061110
  Transmission Date: 20070319
  Serious: Yes (Other)
  Sender: FDA-Public Use
  Company Number: 2006140038

PATIENT
  Age: 71 Year
  Sex: Male

DRUGS (5)
  1. INSPRA [Suspect]
     Indication: CARDIAC FAILURE
     Dosage: 25 MG (25 MG, DAILY), ORAL
     Route: 048
  2. INSULIN (INSULIN) [Concomitant]
  3. BETA BLOCKING AGENTS (BETA BLOCKING AGENTS) [Concomitant]
  4. MARCUMAR [Concomitant]
  5. DIGITALIS CAP [Concomitant]

REACTIONS (1)
  - BLOOD GLUCOSE INCREASED [None]
